FAERS Safety Report 15653762 (Version 12)
Quarter: 2019Q2

REPORT INFORMATION
  Report Type: Spontaneous
  Country: US (occurrence: US)
  Receive Date: 20181124
  Receipt Date: 20190506
  Transmission Date: 20190711
  Serious: Yes (Hospitalization, Other)
  Sender: FDA-Public Use
  Company Number: US-JNJFOC-20181118141

PATIENT
  Age: 33 Year
  Sex: Female
  Weight: 45.81 kg

DRUGS (22)
  1. DURAGESIC [Suspect]
     Active Substance: FENTANYL
     Indication: ARACHNOIDITIS
     Route: 062
     Dates: start: 201810
  2. DURAGESIC [Suspect]
     Active Substance: FENTANYL
     Indication: TOXICITY TO VARIOUS AGENTS
     Route: 062
     Dates: start: 201802
  3. ATIVAN [Concomitant]
     Active Substance: LORAZEPAM
     Route: 048
  4. DIAZEPAM. [Concomitant]
     Active Substance: DIAZEPAM
     Indication: ANXIETY
     Route: 065
     Dates: end: 2019
  5. DURAGESIC [Suspect]
     Active Substance: FENTANYL
     Indication: LUMBAR PUNCTURE
     Route: 062
     Dates: start: 201810
  6. DURAGESIC [Suspect]
     Active Substance: FENTANYL
     Indication: SMALL FIBRE NEUROPATHY
     Route: 062
     Dates: start: 201810
  7. DURAGESIC [Suspect]
     Active Substance: FENTANYL
     Indication: PAIN
     Route: 062
     Dates: start: 2018
  8. DURAGESIC [Suspect]
     Active Substance: FENTANYL
     Indication: ARACHNOIDITIS
     Route: 062
     Dates: start: 2018
  9. DURAGESIC [Suspect]
     Active Substance: FENTANYL
     Indication: HEADACHE
     Route: 062
     Dates: start: 201802
  10. DURAGESIC [Suspect]
     Active Substance: FENTANYL
     Indication: HEADACHE
     Route: 062
     Dates: start: 201810
  11. DURAGESIC [Suspect]
     Active Substance: FENTANYL
     Indication: TOXICITY TO VARIOUS AGENTS
     Route: 062
     Dates: start: 2018
  12. DIAZEPAM. [Concomitant]
     Active Substance: DIAZEPAM
     Indication: ANXIETY
     Route: 065
     Dates: start: 201902
  13. DURAGESIC [Suspect]
     Active Substance: FENTANYL
     Indication: PAIN
     Route: 062
     Dates: start: 201810
  14. DURAGESIC [Suspect]
     Active Substance: FENTANYL
     Indication: LUMBAR PUNCTURE
     Route: 062
     Dates: start: 2018
  15. DURAGESIC [Suspect]
     Active Substance: FENTANYL
     Indication: HEADACHE
     Route: 062
     Dates: start: 2018
  16. DURAGESIC [Suspect]
     Active Substance: FENTANYL
     Indication: SMALL FIBRE NEUROPATHY
     Route: 062
     Dates: start: 2018
  17. DURAGESIC [Suspect]
     Active Substance: FENTANYL
     Indication: PAIN
     Route: 062
     Dates: start: 201802
  18. DURAGESIC [Suspect]
     Active Substance: FENTANYL
     Indication: TOXICITY TO VARIOUS AGENTS
     Route: 062
     Dates: start: 201810
  19. DURAGESIC [Suspect]
     Active Substance: FENTANYL
     Indication: LUMBAR PUNCTURE
     Route: 062
     Dates: start: 201802
  20. DURAGESIC [Suspect]
     Active Substance: FENTANYL
     Indication: ARACHNOIDITIS
     Route: 062
     Dates: start: 201802
  21. OXYCODONE [Concomitant]
     Active Substance: OXYCODONE
     Indication: PAIN
     Route: 054
  22. DURAGESIC [Suspect]
     Active Substance: FENTANYL
     Indication: SMALL FIBRE NEUROPATHY
     Route: 062
     Dates: start: 201802

REACTIONS (12)
  - Hormone level abnormal [Unknown]
  - Caesarean section [Recovered/Resolved]
  - Product complaint [Unknown]
  - Product adhesion issue [Unknown]
  - Weight decreased [Not Recovered/Not Resolved]
  - Wrong technique in product usage process [Unknown]
  - Drug dependence [Not Recovered/Not Resolved]
  - Muscle twitching [Unknown]
  - Procedural complication [Unknown]
  - Head discomfort [Unknown]
  - Exposure during pregnancy [Not Recovered/Not Resolved]
  - Drug ineffective [Not Recovered/Not Resolved]

NARRATIVE: CASE EVENT DATE: 2018
